FAERS Safety Report 4361658-9 (Version None)
Quarter: 2004Q2

REPORT INFORMATION
  Report Type: 
  Country: None (occurrence: None)
  Receive Date: 20040521
  Receipt Date: 20040419
  Transmission Date: 20050107
  Serious: No
  Sender: FDA-Public Use
  Company Number: US-GLAXOSMITHKLINE-A0507594A

PATIENT
  Age: 54 Year
  Sex: Female

DRUGS (4)
  1. WELLBUTRIN XL [Suspect]
     Indication: PANIC REACTION
     Dosage: 150MG PER DAY
     Route: 048
     Dates: start: 20040408
  2. PREMARIN [Concomitant]
  3. XANAX [Concomitant]
  4. ARGATROBAN [Concomitant]

REACTIONS (2)
  - INSOMNIA [None]
  - NAUSEA [None]
